FAERS Safety Report 8030504-4 (Version None)
Quarter: 2012Q1

REPORT INFORMATION
  Report Type: 
  Country: None (occurrence: None)
  Receive Date: 20120105
  Receipt Date: 20111221
  Transmission Date: 20120608
  Serious: No
  Sender: FDA-Public Use
  Company Number: TPA2011A08681

PATIENT
  Sex: Male

DRUGS (1)
  1. ULORIC [Suspect]
     Dosage: 80 MG (80 MG, 1 IN 1 D) PER ORAL
     Route: 048

REACTIONS (3)
  - OBSTRUCTIVE UROPATHY [None]
  - DIPLEGIA [None]
  - RASH [None]
